FAERS Safety Report 15373616 (Version 2)
Quarter: 2018Q3

REPORT INFORMATION
  Report Type: Spontaneous
  Country: US (occurrence: US)
  Receive Date: 20180912
  Receipt Date: 20180921
  Transmission Date: 20181010
  Serious: No
  Sender: FDA-Public Use
  Company Number: US-PFIZER INC-2017348804

PATIENT
  Age: 71 Year
  Sex: Male

DRUGS (1)
  1. VFEND [Suspect]
     Active Substance: VORICONAZOLE
     Indication: LUNG TRANSPLANT
     Dosage: 300 MG, 2X/DAY (TAKE 1.5 TABS (300 MG TOTAL) BY MOUTH EVERY 12 HOURS)
     Route: 048
     Dates: start: 20170809

REACTIONS (1)
  - Product use in unapproved indication [Unknown]

NARRATIVE: CASE EVENT DATE: 20170809
